FAERS Safety Report 10987164 (Version 1)
Quarter: 2015Q1

REPORT INFORMATION
  Report Type: Spontaneous
  Country: US (occurrence: None)
  Receive Date: 20150324
  Receipt Date: 20150324
  Transmission Date: 20150721
  Serious: Yes (Other)
  Sender: FDA-Public Use
  Company Number: 1000071934

PATIENT
  Age: 32 Year
  Sex: Female

DRUGS (3)
  1. VIIBRYD [Suspect]
     Active Substance: VILAZODONE HYDROCHLORIDE
     Indication: GENERALISED ANXIETY DISORDER
     Route: 048
     Dates: start: 20141015, end: 20141023
  2. TROKENDI XR [Concomitant]
     Active Substance: TOPIRAMATE
  3. SUMATRIPTAN (SUMATRIPTAN) [Concomitant]
     Active Substance: SUMATRIPTAN

REACTIONS (2)
  - Serotonin syndrome [None]
  - Off label use [None]

NARRATIVE: CASE EVENT DATE: 20141015
